FAERS Safety Report 7218567-7 (Version None)
Quarter: 2011Q1

REPORT INFORMATION
  Report Type: 
  Country: None (occurrence: None)
  Receive Date: 20110110
  Receipt Date: 20101217
  Transmission Date: 20110831
  Serious: Yes (Hospitalization, Other)
  Sender: FDA-Public Use
  Company Number: DE-PFIZER INC-2010031955

PATIENT
  Age: 70 Year
  Sex: Female

DRUGS (97)
  1. HYDROCORTISONE SODIUM SUCCINATE [Suspect]
     Indication: SEPSIS
     Dosage: 140 MG, UNK
     Route: 042
     Dates: start: 20070829, end: 20070901
  2. TAVOR [Suspect]
     Dosage: 1 MG/ 1 X DAILY
     Route: 048
     Dates: start: 20070827
  3. TAVOR [Suspect]
     Dosage: 1 MG, 1X/DAY
     Route: 048
     Dates: start: 20070922, end: 20070922
  4. ALDACTONE [Suspect]
     Indication: HYPERTENSION
     Dosage: 100 MG, 1X/DAY
     Route: 048
     Dates: start: 20070901
  5. MUCOSOLVAN [Suspect]
     Indication: SECRETION DISCHARGE
     Dosage: UNK
     Route: 042
     Dates: start: 20070907, end: 20070912
  6. MAGNETRANS FORTE [Suspect]
     Indication: SUPPLEMENTATION THERAPY
     Dosage: 300 MG IN THE MORNING, 300 MG IN THE EVENING
     Route: 048
     Dates: start: 20070911, end: 20070911
  7. JONOSTERIL [Suspect]
     Dosage: UNK
     Route: 042
     Dates: start: 20070905, end: 20070911
  8. VITAMIN B COMPLEX [Suspect]
     Indication: SUPPLEMENTATION THERAPY
     Dosage: UNK
     Route: 042
     Dates: start: 20070911, end: 20070911
  9. INZOLEN [Suspect]
     Indication: SUPPLEMENTATION THERAPY
     Dosage: UNK
     Route: 042
     Dates: start: 20070912, end: 20070914
  10. PIPRIL [Concomitant]
     Indication: PSOAS ABSCESS
     Dosage: 4 G, 2X/DAY
     Route: 042
     Dates: start: 20070827, end: 20070828
  11. INSUMAN RAPID [Concomitant]
     Indication: HYPERGLYCAEMIA
     Dosage: 8 IU, UNK
     Route: 042
     Dates: start: 20070827, end: 20070828
  12. ARTERENOL [Concomitant]
     Indication: CARDIOVASCULAR INSUFFICIENCY
     Dosage: UNK
     Route: 042
     Dates: start: 20070828, end: 20070831
  13. DOLANTIN [Concomitant]
     Indication: PAIN
     Dosage: 25 MG UNK
     Route: 042
     Dates: start: 20070902, end: 20070902
  14. KALIUM ^VERLA^ [Concomitant]
     Indication: SUPPLEMENTATION THERAPY
     Dosage: 2 IN THE MORNING
     Route: 048
     Dates: start: 20070902, end: 20070903
  15. ACETYLCYSTEINE [Suspect]
     Dosage: 300 MG, DAILY
     Route: 048
     Dates: start: 20070905, end: 20070918
  16. POTASSIUM CHLORIDE [Suspect]
     Indication: SUPPLEMENTATION THERAPY
     Dosage: UNK
     Route: 042
     Dates: start: 20070827, end: 20070913
  17. SOLU-DECORTIN-H [Suspect]
     Indication: STRIDOR
     Dosage: 250 MG, DAILY
     Route: 042
     Dates: start: 20070906, end: 20070906
  18. LASIX [Suspect]
     Indication: POLYURIA
     Dosage: 40 MG, 4X/DAY
     Route: 048
     Dates: start: 20070902
  19. PARACETAMOL [Suspect]
     Dosage: 1 G, 3X/DAY
     Route: 048
     Dates: end: 20070916
  20. JONOSTERIL [Suspect]
     Dosage: UNK
     Route: 042
     Dates: start: 20070923, end: 20070923
  21. CLEXANE [Suspect]
     Indication: THROMBOSIS PROPHYLAXIS
     Dosage: UNK
     Route: 058
     Dates: start: 20070908
  22. MORONAL [Suspect]
     Indication: PROPHYLAXIS
     Dosage: UNK
     Route: 061
     Dates: start: 20070914, end: 20070918
  23. NITROGLYCERIN [Suspect]
     Indication: HYPERTENSION
     Dosage: 2 PUFFS
     Route: 060
     Dates: start: 20070917, end: 20070917
  24. HALDOL [Concomitant]
     Dosage: 5 MG
     Route: 042
     Dates: start: 20070828, end: 20070828
  25. METOCLOPRAMIDE [Concomitant]
     Indication: NAUSEA
     Dosage: 10 MG, 3X/DAY
     Route: 042
     Dates: start: 20070824, end: 20070901
  26. SUFENTANIL CITRATE [Concomitant]
     Indication: STUPOR
     Dosage: UNK
     Route: 042
     Dates: start: 20070829, end: 20070831
  27. DIPYRONE INJ [Concomitant]
     Dosage: 1 G, 3X/DAY
     Route: 042
     Dates: start: 20070829, end: 20070904
  28. ACTRAPID [Concomitant]
     Indication: HYPERGLYCAEMIA
     Dosage: UNK
     Route: 042
     Dates: start: 20070829, end: 20070905
  29. BERODUAL [Suspect]
     Indication: LUNG DISORDER
     Dosage: 2 PUFFS IN THE MORNING, 2 PUFFS IN THE EVENING
     Route: 055
     Dates: start: 20070906
  30. HYDROCHLOROTHIAZIDE [Suspect]
     Indication: POLYURIA
     Dosage: 25 MG, 1X/DAY
     Route: 048
     Dates: start: 20070907, end: 20070911
  31. ADALAT [Suspect]
     Dosage: 5 MG, 1X/DAY
     Route: 048
     Dates: end: 20070914
  32. SODIUM CHLORIDE [Suspect]
     Indication: PROPHYLAXIS
     Dosage: UNK
     Route: 042
     Dates: start: 20070911
  33. AMBROXOL [Suspect]
     Indication: SECRETION DISCHARGE
     Dosage: 15 MG, 3X/DAY
     Route: 048
     Dates: start: 20070913, end: 20070918
  34. CATAPRESAN [Suspect]
     Indication: HYPERTENSION
     Dosage: 150 MG, UNK
     Route: 042
     Dates: start: 20070830, end: 20070831
  35. CATAPRESAN [Suspect]
     Dosage: 150 MG, UNK
     Route: 042
     Dates: start: 20070907, end: 20070907
  36. DIPYRONE INJ [Suspect]
     Indication: PAIN
     Dosage: 40 GTT, 4X/DAY
     Route: 048
     Dates: start: 20070905, end: 20070914
  37. DIAZEPAM [Concomitant]
     Indication: RESTLESSNESS
     Dosage: 2.5 MG (2.5 MG IN THE MORNING, 5 MG AT NOON, 5 MG IN THE EVENING)
     Route: 042
     Dates: start: 20070827, end: 20070828
  38. CLINDAMYCIN [Concomitant]
     Indication: PSOAS ABSCESS
     Dosage: 600 MG, 3X/DAY
     Route: 042
     Dates: start: 20070828, end: 20070831
  39. PANTOZOL [Suspect]
     Dosage: 2X20 MG IN THE MORNING
     Route: 048
     Dates: start: 20070905
  40. ADALAT [Suspect]
     Indication: HYPERTENSION
     Dosage: 5 MG, 2X/DAY
     Route: 048
     Dates: start: 20070911
  41. PARACETAMOL [Suspect]
     Indication: PYREXIA
     Dosage: 1 G, 2X/DAY
     Route: 048
     Dates: start: 20070912
  42. PERENTEROL [Suspect]
     Indication: DIARRHOEA
     Dosage: 2 IN THE MORNING, 2 AT NOON, 2 IN THE EVENING
     Route: 048
     Dates: start: 20070915, end: 20070919
  43. AVELOX [Suspect]
     Indication: PSOAS ABSCESS
     Dosage: 400 MG, 1X/DAY
     Route: 048
     Dates: start: 20070916, end: 20070919
  44. CLINDAMYCIN HCL [Concomitant]
     Indication: PSOAS ABSCESS
     Dosage: 600 MG, 3X/DAY
     Route: 042
     Dates: start: 20090828, end: 20090828
  45. BELOC [Concomitant]
     Indication: HYPERTENSION
     Dosage: 5 MG, 1X/DAY
     Route: 042
     Dates: start: 20070828, end: 20070828
  46. LASIX [Concomitant]
     Dosage: 10 MG, 500 MG AND 50 MG
     Route: 042
     Dates: start: 20070828, end: 20070905
  47. EUGALAC [Concomitant]
     Indication: CONSTIPATION
     Dosage: 20 ML, 1X/DAY
     Route: 048
     Dates: start: 20070904, end: 20070905
  48. ACETYLCYSTEINE [Suspect]
     Indication: SECRETION DISCHARGE
     Dosage: 300 MG, 3X/DAY
     Route: 048
     Dates: start: 20070827, end: 20070828
  49. EMBOLEX [Suspect]
     Indication: THROMBOSIS PROPHYLAXIS
     Dosage: 3000 IU, UNK
     Route: 058
     Dates: start: 20070830, end: 20070907
  50. SOLU-DECORTIN-H [Suspect]
     Indication: RASH
     Dosage: 250 MG, UNK
     Route: 042
     Dates: start: 20070920, end: 20070920
  51. DICLAC [Suspect]
     Indication: PAIN
     Dosage: 75 MG, 2X/DAY
     Route: 048
     Dates: start: 20070908, end: 20070912
  52. DIPIDOLOR [Suspect]
     Dosage: 3 MG, 3X/DAY
     Route: 042
     Dates: start: 20070830, end: 20070905
  53. VOLUVEN [Suspect]
     Indication: SUPPLEMENTATION THERAPY
     Dosage: 500 ML, UNK
     Route: 042
     Dates: start: 20070827, end: 20070829
  54. JONOSTERIL [Suspect]
     Dosage: UNK
     Route: 042
     Dates: start: 20070920, end: 20070921
  55. CLONIDINE HCL [Suspect]
     Indication: HYPERTENSION
     Dosage: 150 MG, 3X/DAY
     Route: 048
     Dates: start: 20070912
  56. COMBACTAM [Concomitant]
     Indication: PSOAS ABSCESS
     Dosage: 1 G, 2X/DAY
     Route: 042
     Dates: start: 20070827, end: 20070828
  57. ROCEPHIN [Concomitant]
     Indication: PSOAS ABSCESS
     Dosage: 2 G, 2X/DAY
     Route: 042
     Dates: start: 20070828, end: 20070831
  58. DIPYRONE INJ [Concomitant]
     Dosage: 1 G, 3X/DAY
     Route: 042
     Dates: start: 20070824
  59. TPN [Concomitant]
     Dosage: UNK
     Route: 042
     Dates: start: 20070903, end: 20070905
  60. EBRANTIL FOR INJECTION [Concomitant]
     Indication: HYPERTENSION
     Dosage: 250 MG, UNK
     Route: 042
     Dates: start: 20070831, end: 20070901
  61. NORVASC [Suspect]
     Indication: HYPERTENSION
     Dosage: 10 MG, 1X/DAY
     Route: 048
     Dates: start: 20070901
  62. TAVOR [Suspect]
     Dosage: 1 MG, 1X/DAY
     Route: 048
     Dates: start: 20070918, end: 20070918
  63. TAVOR [Suspect]
     Dosage: 1 MG, 1X/DAY
     Route: 048
     Dates: start: 20070920, end: 20070920
  64. RIFAMPICIN [Suspect]
     Indication: PSOAS ABSCESS
     Dosage: 600 MG, 1X/DAY
     Route: 042
     Dates: start: 20070831, end: 20070916
  65. BELOC ZOK [Suspect]
     Indication: HYPERTENSION
     Dosage: TWICE DAILY
     Route: 048
     Dates: start: 20070901
  66. LASIX [Suspect]
     Dosage: 40 MG, 1X/DAY
     Route: 048
  67. VOLUVEN [Suspect]
     Dosage: 500 ML, UNK
     Route: 042
     Dates: start: 20070907, end: 20070914
  68. LEVOTHYROXINE SODIUM [Suspect]
     Indication: HYPOTHYROIDISM
     Dosage: 75 MG, 1X/DAY
     Route: 048
     Dates: start: 20070910
  69. AMITRIPTYLINE HCL [Suspect]
     Indication: PAIN
     Dosage: 75 MG, 1X/DAY
     Route: 048
     Dates: start: 20070907, end: 20070914
  70. HALDOL [Concomitant]
     Indication: RESTLESSNESS
     Dosage: 1 MG
     Route: 042
     Dates: start: 20070827, end: 20070827
  71. PANTOZOL [Concomitant]
     Indication: PROPHYLAXIS AGAINST GASTROINTESTINAL ULCER
     Dosage: 40 MG, 1X/DAY
     Route: 042
     Dates: start: 20070827, end: 20070901
  72. MULTIBIONTA [Concomitant]
     Indication: PARENTERAL NUTRITION
     Dosage: 1 AMPULLA
     Route: 042
     Dates: start: 20070902, end: 20070902
  73. TPN [Concomitant]
     Indication: SUPPLEMENTATION THERAPY
     Dosage: UNK
     Route: 042
     Dates: start: 20070829, end: 20070831
  74. HYDROCORTISONE SODIUM SUCCINATE [Suspect]
     Indication: STRIDOR
     Dosage: 200 MG, UNK
     Route: 042
     Dates: start: 20070907, end: 20070914
  75. TAVOR [Suspect]
     Dosage: 1 MG, 1X/DAY
     Route: 048
     Dates: start: 20070907, end: 20070915
  76. DIPIDOLOR [Suspect]
     Indication: PAIN
     Dosage: 2 MG, 3X/DAY
     Route: 042
     Dates: start: 20070827, end: 20070828
  77. DIPIDOLOR [Suspect]
     Dosage: 2 MG, 4X/DAY
     Route: 042
     Dates: start: 20070908, end: 20070909
  78. DIOVAN [Suspect]
     Indication: HYPERTENSION
     Dosage: 80 MG, 1X/DAY
     Route: 048
     Dates: start: 20070907, end: 20070912
  79. KALINOR [Suspect]
     Indication: SUPPLEMENTATION THERAPY
     Dosage: 2 X DAILY
     Route: 048
     Dates: start: 20070912, end: 20070920
  80. HEPARIN [Concomitant]
     Indication: THROMBOSIS PROPHYLAXIS
     Dosage: 15000 IU, UNK
     Route: 042
     Dates: start: 20070828, end: 20070828
  81. PROPOFOL [Concomitant]
     Indication: STUPOR
     Dosage: UNK
     Route: 042
     Dates: start: 20070828, end: 20070831
  82. BELOC [Concomitant]
     Dosage: 5 MG (10 MG IN THE MORNING, 10 MG AT NOON, 5 MG IN THE EVENING)
     Route: 042
     Dates: start: 20070830, end: 20070901
  83. ACETYLCYSTEINE [Concomitant]
     Indication: SECRETION DISCHARGE
     Dosage: 600 MG, 2X/DAY
     Route: 042
     Dates: start: 20070829, end: 20070829
  84. NEOSTIGMINE [Concomitant]
     Indication: GASTROINTESTINAL MOTILITY DISORDER
     Dosage: 1 MG, UNK
     Route: 042
     Dates: start: 20070829, end: 20070831
  85. LANTUS [Concomitant]
     Indication: HYPERGLYCAEMIA
     Dosage: UNK
     Route: 058
     Dates: start: 20070901, end: 20070901
  86. VITAMIN B-12 [Concomitant]
     Indication: SUPPLEMENTATION THERAPY
     Dosage: 1 AMPULLA
     Route: 042
     Dates: start: 20070902, end: 20070902
  87. VITAMIN K TAB [Concomitant]
     Indication: SUPPLEMENTATION THERAPY
     Dosage: 1 AMPULLA
     Route: 042
     Dates: start: 20070902, end: 20070902
  88. DIPYRONE INJ [Concomitant]
     Dosage: 1 G, 3X/DAY
     Route: 048
     Dates: start: 20070904, end: 20070904
  89. STAPHYLEX [Suspect]
     Indication: PSOAS ABSCESS
     Dosage: 2 G, 3X/DAY
     Route: 042
     Dates: start: 20070831, end: 20070916
  90. INSULIN [Suspect]
     Indication: HYPERGLYCAEMIA
     Dosage: UNK
     Route: 058
     Dates: start: 20070905, end: 20070914
  91. TRAMAL [Suspect]
     Indication: PAIN
     Dosage: 20 GTT, 2X/DAY
     Route: 048
     Dates: start: 20070908, end: 20070909
  92. TRAMAL [Suspect]
     Dosage: 20 GTT, 3X/DAY
     Route: 048
     Dates: start: 20070912, end: 20070913
  93. JONOSTERIL [Suspect]
     Indication: SUPPLEMENTATION THERAPY
     Dosage: UNK
     Route: 042
     Dates: start: 20070824, end: 20070903
  94. JONOSTERIL [Suspect]
     Dosage: UNK
     Route: 042
     Dates: start: 20070914, end: 20070916
  95. HETASTARCH IN SODIUM CHLORIDE [Concomitant]
     Indication: SUPPLEMENTATION THERAPY
     Dosage: 6 %, UNK
     Route: 042
     Dates: start: 20070828, end: 20070828
  96. AMINOVEN [Concomitant]
     Indication: SUPPLEMENTATION THERAPY
     Dosage: UNK
     Route: 042
     Dates: start: 20070828, end: 20070828
  97. FOLIC ACID [Concomitant]
     Indication: SUPPLEMENTATION THERAPY
     Dosage: 1 AMPULLA
     Route: 042
     Dates: start: 20070902, end: 20070902

REACTIONS (1)
  - STEVENS-JOHNSON SYNDROME [None]
